FAERS Safety Report 22239057 (Version 1)
Quarter: 2023Q2

REPORT INFORMATION
  Report Type: Report from Study
  Country: US (occurrence: US)
  Receive Date: 20230421
  Receipt Date: 20230421
  Transmission Date: 20230722
  Serious: Yes (Other)
  Sender: FDA-Public Use
  Company Number: US-MYLANLABS-2023M1041589

PATIENT
  Age: 55 Year
  Sex: Male

DRUGS (1)
  1. TERIFLUNOMIDE [Interacting]
     Active Substance: TERIFLUNOMIDE
     Indication: Multiple sclerosis
     Dosage: UNK
     Route: 065

REACTIONS (3)
  - COVID-19 [Unknown]
  - Humoral immune defect [Unknown]
  - Drug interaction [Unknown]
